FAERS Safety Report 11373402 (Version 1)
Quarter: 2015Q3

REPORT INFORMATION
  Report Type: Spontaneous
  Country: US (occurrence: US)
  Receive Date: 20150811
  Receipt Date: 20150811
  Transmission Date: 20151125
  Serious: No
  Sender: FDA-Public Use
  Company Number: US-ELI_LILLY_AND_COMPANY-US201211004519

PATIENT

DRUGS (3)
  1. CIALIS [Suspect]
     Active Substance: TADALAFIL
     Dosage: 5 MG, PRN
     Dates: start: 201210
  2. CIALIS [Suspect]
     Active Substance: TADALAFIL
     Dosage: 5 MG, QD
     Dates: start: 20121102
  3. CIALIS [Suspect]
     Active Substance: TADALAFIL
     Indication: PEYRONIE^S DISEASE
     Dosage: 20 MG, PRN
     Dates: start: 2010

REACTIONS (2)
  - Myalgia [Unknown]
  - Off label use [Unknown]
